FAERS Safety Report 4280387-3 (Version None)
Quarter: 2004Q1

REPORT INFORMATION
  Report Type: 
  Country: None (occurrence: None)
  Receive Date: 20040127
  Receipt Date: 20040114
  Transmission Date: 20041129
  Serious: Yes (Hospitalization, Other)
  Sender: FDA-Public Use
  Company Number: 200410379GDDC

PATIENT
  Age: 52 Year
  Sex: Male

DRUGS (4)
  1. RIFAMPIN [Suspect]
     Indication: PULMONARY TUBERCULOSIS
  2. PYRAZINAMIDE [Suspect]
     Indication: PULMONARY TUBERCULOSIS
  3. ISONIAZID [Suspect]
     Indication: PULMONARY TUBERCULOSIS
  4. ETHAMBUTOL HCL [Suspect]
     Indication: PULMONARY TUBERCULOSIS

REACTIONS (19)
  - ARGININOSUCCINATE SYNTHETASE DEFICIENCY [None]
  - CONFUSIONAL STATE [None]
  - CONVULSION [None]
  - ELECTROENCEPHALOGRAM ABNORMAL [None]
  - ENCEPHALOPATHY [None]
  - GENERALISED NON-CONVULSIVE EPILEPSY [None]
  - GLYCOGEN STORAGE DISEASE TYPE VIII [None]
  - HAEMODIALYSIS [None]
  - HEPATIC STEATOSIS [None]
  - HEPATITIS [None]
  - HYPERAMMONAEMIA [None]
  - HYPERCATABOLISM [None]
  - HYPOVOLAEMIC SHOCK [None]
  - INTERNATIONAL NORMALISED RATIO INCREASED [None]
  - PLEURAL EFFUSION [None]
  - PNEUMONIA [None]
  - POSTICTAL STATE [None]
  - RESPIRATORY FAILURE [None]
  - UPPER GASTROINTESTINAL HAEMORRHAGE [None]
